FAERS Safety Report 7356220-X (Version None)
Quarter: 2011Q1

REPORT INFORMATION
  Report Type: 
  Country: None (occurrence: None)
  Receive Date: 20110316
  Receipt Date: 20100809
  Transmission Date: 20110831
  Serious: Yes (Hospitalization, Other)
  Sender: FDA-Public Use
  Company Number: US-BAYER-201023124NA

PATIENT
  Sex: Female
  Weight: 74.545 kg

DRUGS (11)
  1. YAZ [Suspect]
     Dosage: UNK
     Dates: start: 20091101, end: 20100501
  2. CIPROFLOXACIN [Concomitant]
     Indication: BILIARY DYSKINESIA
  3. DIFLUCAN [Concomitant]
  4. ANTIBIOTICS [Concomitant]
  5. FLUCONAZOLE [Concomitant]
  6. MOTRIN [Concomitant]
  7. PANTOPRAZOLE SODIUM [Concomitant]
     Indication: BILIARY DYSKINESIA
  8. YAZ [Suspect]
     Dosage: UNK UNK, QD
     Route: 048
     Dates: start: 20070101, end: 20090901
  9. NYSTATIN [Concomitant]
  10. METRONIDAZOLE [Concomitant]
  11. MYCOLOG [Concomitant]

REACTIONS (9)
  - BILIARY DYSKINESIA [None]
  - ABDOMINAL PAIN [None]
  - DECREASED APPETITE [None]
  - BACK PAIN [None]
  - CHOLECYSTITIS CHRONIC [None]
  - DIARRHOEA [None]
  - VOMITING [None]
  - BILIARY COLIC [None]
  - NAUSEA [None]
